FAERS Safety Report 5570297-3 (Version None)
Quarter: 2007Q4

REPORT INFORMATION
  Report Type: 
  Country: None (occurrence: None)
  Receive Date: 20071219
  Receipt Date: 20071219
  Transmission Date: 20080405
  Serious: Yes (Hospitalization)
  Sender: FDA-Public Use
  Company Number: None

PATIENT
  Sex: Female
  Weight: 52.27 kg

DRUGS (1)
  1. TAXOL [Suspect]
     Dosage: 216 MG

REACTIONS (5)
  - ANAEMIA [None]
  - LEUKOPENIA [None]
  - PELVIC PAIN [None]
  - THROMBOCYTOPENIA [None]
  - VAGINAL HAEMORRHAGE [None]
